FAERS Safety Report 6668083-6 (Version None)
Quarter: 2010Q2

REPORT INFORMATION
  Report Type: 
  Country: None (occurrence: None)
  Receive Date: 20100405
  Receipt Date: 20100326
  Transmission Date: 20101027
  Serious: Yes (Other)
  Sender: FDA-Public Use
  Company Number: CH-BRISTOL-MYERS SQUIBB COMPANY-15041064

PATIENT
  Age: 1 Decade
  Sex: Male

DRUGS (7)
  1. CARBOPLATIN [Suspect]
     Indication: MEDULLOBLASTOMA
  2. CYCLOPHOSPHAMIDE [Suspect]
     Indication: MEDULLOBLASTOMA
  3. LOMUSTINE [Suspect]
     Indication: MEDULLOBLASTOMA
  4. CISPLATIN [Suspect]
     Indication: MEDULLOBLASTOMA
  5. VINCRISTINE SULFATE [Suspect]
     Indication: MEDULLOBLASTOMA
  6. METHOTREXATE [Suspect]
     Indication: MEDULLOBLASTOMA
  7. RADIATION THERAPY [Suspect]
     Indication: MEDULLOBLASTOMA
     Dosage: 1DF: 68GY

REACTIONS (2)
  - PRECOCIOUS PUBERTY [None]
  - SUDDEN HEARING LOSS [None]
